FAERS Safety Report 7372527-4 (Version None)
Quarter: 2011Q1

REPORT INFORMATION
  Report Type: 
  Country: None (occurrence: None)
  Receive Date: 20110315
  Receipt Date: 20110302
  Transmission Date: 20110831
  Serious: No
  Sender: FDA-Public Use
  Company Number: THQ2011A01107

PATIENT
  Age: 44 Year
  Sex: Female

DRUGS (8)
  1. ACTOS [Suspect]
     Indication: DIABETES MELLITUS
     Dosage: 15 MG (15 MG,1 IN 1 D) PER ORAL ; 30 MG (30 MG,1 IN 1 D) , PER ORAL
     Route: 048
     Dates: start: 20100919, end: 20101215
  2. ACTOS [Suspect]
     Indication: DIABETES MELLITUS
     Dosage: 15 MG (15 MG,1 IN 1 D) PER ORAL ; 30 MG (30 MG,1 IN 1 D) , PER ORAL
     Route: 048
     Dates: start: 20101216
  3. SELOKEN ZOC (METOPROLOL SUCCINATE) [Concomitant]
  4. FURESIS (FUROSEMIDE) [Concomitant]
  5. DIFORMIN RETARD (METFORMIN HYDROCHLORIDE) [Concomitant]
  6. EFFEXOR [Concomitant]
  7. ENALAPRIL RATIOPHARM (ENALAPRIL MALEATE) [Concomitant]
  8. SIMVASTATIN [Concomitant]

REACTIONS (8)
  - FACE OEDEMA [None]
  - NO THERAPEUTIC RESPONSE [None]
  - ECZEMA [None]
  - HYPERSENSITIVITY [None]
  - HYPERTENSION [None]
  - EYELID OEDEMA [None]
  - BLOOD PRESSURE INCREASED [None]
  - URTICARIA [None]
